FAERS Safety Report 20195246 (Version 1)
Quarter: 2021Q4

REPORT INFORMATION
  Report Type: Spontaneous
  Country: US (occurrence: US)
  Receive Date: 20211216
  Receipt Date: 20211216
  Transmission Date: 20220304
  Serious: No
  Sender: FDA-Public Use
  Company Number: US-KARYOPHARM-2021KPT001513

PATIENT

DRUGS (17)
  1. XPOVIO [Suspect]
     Active Substance: SELINEXOR
     Indication: Plasma cell myeloma
     Dosage: 60 MG, WEEKLY
     Route: 048
     Dates: start: 20211016, end: 20211123
  2. ZOVIRAX [Concomitant]
     Active Substance: ACYCLOVIR
  3. LIPITOR [Concomitant]
     Active Substance: ATORVASTATIN CALCIUM
  4. MEPRON [Concomitant]
     Active Substance: ATOVAQUONE
  5. DEXAMETHASONE [Concomitant]
     Active Substance: DEXAMETHASONE
  6. DICYCLOMINE [Concomitant]
     Active Substance: DICYCLOMINE HYDROCHLORIDE
  7. FLUCONAZOLE [Concomitant]
     Active Substance: FLUCONAZOLE
  8. FUROSEMIDE [Concomitant]
     Active Substance: FUROSEMIDE
  9. GABAPENTIN [Concomitant]
     Active Substance: GABAPENTIN
  10. LEVAQUIN [Concomitant]
     Active Substance: LEVOFLOXACIN
  11. PANTOPRAZOLE [Concomitant]
     Active Substance: PANTOPRAZOLE
  12. UROCIT-K [Concomitant]
     Active Substance: POTASSIUM CITRATE
  13. TRAZODONE [Concomitant]
     Active Substance: TRAZODONE HYDROCHLORIDE
  14. COMPAZINE [Concomitant]
     Active Substance: PROCHLORPERAZINE MALEATE
  15. ZOFRAN [Concomitant]
     Active Substance: ONDANSETRON HYDROCHLORIDE
  16. TOFRANIL [Concomitant]
     Active Substance: IMIPRAMINE HYDROCHLORIDE
  17. POMALYST [Concomitant]
     Active Substance: POMALIDOMIDE

REACTIONS (1)
  - Plasma cell myeloma [Unknown]

NARRATIVE: CASE EVENT DATE: 20211101
